FAERS Safety Report 23127996 (Version 1)
Quarter: 2023Q4

REPORT INFORMATION
  Report Type: Spontaneous
  Country: US (occurrence: None)
  Receive Date: 20231031
  Receipt Date: 20231031
  Transmission Date: 20240110
  Serious: Yes (Life-Threatening, Hospitalization, Other)
  Sender: FDA-Public Use
  Company Number: US-MICRO LABS LIMITED-ML2023-06135

PATIENT
  Age: 76 Year
  Sex: Male

DRUGS (1)
  1. TRANEXAMIC ACID [Suspect]
     Active Substance: TRANEXAMIC ACID
     Indication: Product used for unknown indication
     Route: 037

REACTIONS (11)
  - Hypertension [Unknown]
  - Tachycardia [Unknown]
  - Hypoxia [Unknown]
  - Myoclonus [Unknown]
  - Sinus tachycardia [Unknown]
  - Ventricular tachycardia [Unknown]
  - Shock [Unknown]
  - Lactic acidosis [Unknown]
  - Respiratory failure [Unknown]
  - Toxicity to various agents [Unknown]
  - Medication error [Unknown]
